FAERS Safety Report 9110638 (Version 1)
Quarter: 2013Q1

REPORT INFORMATION
  Report Type: Spontaneous
  Country: US (occurrence: US)
  Receive Date: 20130219
  Receipt Date: 20130219
  Transmission Date: 20140127
  Serious: No
  Sender: FDA-Public Use
  Company Number: US-BRISTOL-MYERS SQUIBB COMPANY-16938342

PATIENT
  Age: 41 Year
  Sex: Male

DRUGS (6)
  1. ABATACEPT SUBQ INJECTION 125MG/ML [Suspect]
     Indication: RHEUMATOID ARTHRITIS
     Route: 058
     Dates: start: 201207
  2. FOLIC ACID [Concomitant]
  3. LEVOTHYROXINE [Concomitant]
  4. PREDNISONE [Concomitant]
  5. VOLTAREN [Concomitant]
  6. TRAMADOL [Concomitant]

REACTIONS (2)
  - Back pain [Not Recovered/Not Resolved]
  - Needle issue [Unknown]
